FAERS Safety Report 6667655-2 (Version None)
Quarter: 2010Q2

REPORT INFORMATION
  Report Type: 
  Country: None (occurrence: None)
  Receive Date: 20100405
  Receipt Date: 20100402
  Transmission Date: 20101027
  Serious: Yes (Life-Threatening, Hospitalization)
  Sender: FDA-Public Use
  Company Number: B0639827A

PATIENT
  Sex: Female

DRUGS (5)
  1. MALARONE [Suspect]
     Indication: PLASMODIUM FALCIPARUM INFECTION
     Dosage: 250MG FOUR TIMES PER DAY
     Route: 048
     Dates: start: 20100307, end: 20100310
  2. TRAMADOL HCL [Suspect]
     Indication: PAIN
     Dosage: 100MG TWICE PER DAY
     Route: 048
     Dates: start: 20100310, end: 20100311
  3. DOMPERIDONE [Suspect]
     Indication: NAUSEA
     Dosage: 10MG THREE TIMES PER DAY
     Route: 048
     Dates: start: 20100308, end: 20100312
  4. DIFFU K [Concomitant]
     Dosage: 600MG TWICE PER DAY
     Route: 048
     Dates: start: 20100310, end: 20100316
  5. DOLIPRANE [Concomitant]
     Dosage: 1000MG THREE TIMES PER DAY
     Route: 048
     Dates: start: 20100308, end: 20100312

REACTIONS (2)
  - AGRANULOCYTOSIS [None]
  - NEUTROPENIA [None]
